FAERS Safety Report 23684140 (Version 1)
Quarter: 2024Q1

REPORT INFORMATION
  Report Type: Spontaneous
  Country: BR (occurrence: BR)
  Receive Date: 20240328
  Receipt Date: 20240328
  Transmission Date: 20240409
  Serious: Yes (Other)
  Sender: FDA-Public Use
  Company Number: BR-FreseniusKabi-FK202405036

PATIENT
  Sex: Male

DRUGS (3)
  1. CLONIDINE HYDROCHLORIDE [Suspect]
     Active Substance: CLONIDINE HYDROCHLORIDE
     Indication: Product used for unknown indication
  2. Precedex (dexmedetomidine) [Concomitant]
     Indication: Relaxation therapy
     Dosage: 5 ML/HOUR IT WENT TO20ML/HOUR.
  3. KETAMINE [Concomitant]
     Active Substance: KETAMINE
     Indication: Relaxation therapy

REACTIONS (10)
  - Seizure [Unknown]
  - Delirium [Unknown]
  - Poisoning [Unknown]
  - Blindness [Unknown]
  - Amnesia [Unknown]
  - Cardiac disorder [Unknown]
  - Agitation [Unknown]
  - Fear [Unknown]
  - Aphasia [Unknown]
  - Illusion [Unknown]
